FAERS Safety Report 19063791 (Version 1)
Quarter: 2021Q1

REPORT INFORMATION
  Report Type: Spontaneous
  Country: AT (occurrence: AT)
  Receive Date: 20210326
  Receipt Date: 20210326
  Transmission Date: 20210420
  Serious: Yes (Hospitalization)
  Sender: FDA-Public Use
  Company Number: NVSC2021AT064279

PATIENT
  Age: 57 Year
  Sex: Female

DRUGS (2)
  1. CLAVAMOX 875 MG/125 MG ? FILMTABLETTEN [Suspect]
     Active Substance: AMOXICILLIN\CLAVULANATE POTASSIUM
     Indication: PRODUCT USED FOR UNKNOWN INDICATION
     Dosage: UNK (P.O.)
     Route: 065
     Dates: start: 20201109, end: 20201109
  2. EUTHYROX [Concomitant]
     Active Substance: LEVOTHYROXINE SODIUM
     Indication: PRODUCT USED FOR UNKNOWN INDICATION
     Dosage: UNK (25 MIKROGRAMM)
     Route: 065

REACTIONS (4)
  - Type I hypersensitivity [Recovered/Resolved]
  - Pruritus allergic [Recovered/Resolved]
  - Dermatitis exfoliative generalised [Recovered/Resolved]
  - Flushing [Recovered/Resolved]

NARRATIVE: CASE EVENT DATE: 20201109
